FAERS Safety Report 14987308 (Version 1)
Quarter: 2018Q2

REPORT INFORMATION
  Report Type: Spontaneous
  Country: DK (occurrence: DK)
  Receive Date: 20180608
  Receipt Date: 20180608
  Transmission Date: 20180711
  Serious: Yes (Hospitalization)
  Sender: FDA-Public Use
  Company Number: DK-ALK-ABELLO A/S-2017AA001974

PATIENT

DRUGS (3)
  1. GRAZAX [Suspect]
     Active Substance: PHLEUM PRATENSE POLLEN
     Dosage: UNK
     Dates: start: 20170206, end: 20170410
  2. LEVOTHYROXINE SODIUM. [Concomitant]
     Active Substance: LEVOTHYROXINE SODIUM
     Indication: HYPOTHYROIDISM
     Dosage: UNK
  3. GRAZAX [Suspect]
     Active Substance: PHLEUM PRATENSE POLLEN
     Indication: SEASONAL ALLERGY
     Dosage: UNK
     Route: 048
     Dates: start: 20170120, end: 20170130

REACTIONS (4)
  - Oesophageal pain [Recovering/Resolving]
  - Oral pruritus [Recovering/Resolving]
  - Eosinophilic oesophagitis [Recovering/Resolving]
  - Gastrooesophageal reflux disease [Recovering/Resolving]

NARRATIVE: CASE EVENT DATE: 20170120
